FAERS Safety Report 4988268-4 (Version None)
Quarter: 2006Q2

REPORT INFORMATION
  Report Type: 
  Country: None (occurrence: None)
  Receive Date: 20060425
  Receipt Date: 20060401
  Transmission Date: 20061013
  Serious: Yes (Other)
  Sender: FDA-Public Use
  Company Number: DE-2006-008345

PATIENT
  Sex: Female

DRUGS (3)
  1. BETAFERON (INTERFERON BETA - 1B) INJECTION, 250 MICROGRAM [Suspect]
     Dosage: SUBCUTANEOUS
     Route: 058
     Dates: start: 20060101
  2. ACETAMINOPHEN [Concomitant]
  3. TOPAMAX [Concomitant]

REACTIONS (3)
  - ABASIA [None]
  - HALLUCINATION [None]
  - MUSCLE SPASMS [None]
